FAERS Safety Report 8021284-7 (Version None)
Quarter: 2012Q1

REPORT INFORMATION
  Report Type: 
  Country: None (occurrence: None)
  Receive Date: 20120104
  Receipt Date: 20111223
  Transmission Date: 20120608
  Serious: Yes (Hospitalization)
  Sender: FDA-Public Use
  Company Number: US-BAYER-2011-036920

PATIENT
  Age: 39 Year
  Sex: Female

DRUGS (21)
  1. STADOL [Concomitant]
  2. TRAZODONE HCL [Concomitant]
     Dosage: 50 MG, UNK
  3. MORPHINE [Concomitant]
     Dosage: 30 MG, UNK
  4. IBUPROFEN [Concomitant]
     Dosage: 800 MG, UNK
  5. OXYCODONE HCL AND ACETAMINOPHEN [Concomitant]
     Dosage: 325 MG, UNK
  6. YAZ [Suspect]
     Indication: MENORRHAGIA
     Dosage: UNK
     Dates: start: 20090401
  7. MELOXICAM [Concomitant]
     Dosage: 7.5 MG, UNK
  8. AMOXICILLIN AND CLAVULANATE POTASSIUM [Concomitant]
     Dosage: 875 UNK, UNK
  9. MOBIC [Concomitant]
  10. LEVOTHYROXINE SODIUM [Concomitant]
     Dosage: 75 MCG/24HR, UNK
     Dates: start: 20080101, end: 20090101
  11. NEURONTIN [Concomitant]
     Dosage: 100 MG, UNK
  12. PROTONIX [Concomitant]
     Dosage: 40 MG, UNK
  13. TOPAMAX [Concomitant]
     Indication: MIGRAINE
     Dosage: UNK
     Dates: start: 20090101
  14. TORADOL [Concomitant]
  15. LORTAB [Concomitant]
     Indication: PAIN
     Dosage: UNK UNK, PRN
  16. GABAPENTIN [Concomitant]
     Dosage: 100 MG, UNK
  17. METHYLPREDNISOLONE [Concomitant]
     Dosage: 4 MG, UNK
  18. FLEXERIL [Concomitant]
  19. FLUCONAZOLE [Concomitant]
     Dosage: 150 MG, UNK
  20. ALBUTEROL [Concomitant]
  21. CETIRIZINE HCL [Concomitant]

REACTIONS (3)
  - PAIN [None]
  - INJURY [None]
  - PULMONARY EMBOLISM [None]
